FAERS Safety Report 6303122-3 (Version None)
Quarter: 2009Q3

REPORT INFORMATION
  Report Type: 
  Country: None (occurrence: None)
  Receive Date: 20090810
  Receipt Date: 20090731
  Transmission Date: 20100115
  Serious: Yes (Disabling, Other)
  Sender: FDA-Public Use
  Company Number: US-MERCK-0706USA00886

PATIENT
  Age: 57 Year
  Sex: Female

DRUGS (2)
  1. FOSAMAX [Suspect]
     Indication: RHEUMATOID ARTHRITIS
     Route: 048
     Dates: start: 20000608
  2. FOSAMAX [Suspect]
     Route: 048
     Dates: start: 20060422, end: 20060628

REACTIONS (32)
  - ADVERSE DRUG REACTION [None]
  - ANXIETY [None]
  - ARTHRITIS [None]
  - ASTHENIA [None]
  - BONE DENSITY DECREASED [None]
  - BREAST CANCER STAGE III [None]
  - BREAST DISORDER [None]
  - BURNING SENSATION [None]
  - CONDITION AGGRAVATED [None]
  - DENTAL CARIES [None]
  - DEPRESSION [None]
  - DISABILITY [None]
  - FEAR [None]
  - GINGIVAL DISORDER [None]
  - GINGIVAL INFECTION [None]
  - GRIP STRENGTH DECREASED [None]
  - HAND DEFORMITY [None]
  - IMPAIRED HEALING [None]
  - INFECTION [None]
  - JOINT RANGE OF MOTION DECREASED [None]
  - LOOSE TOOTH [None]
  - MULTIPLE INJURIES [None]
  - NAUSEA [None]
  - OSTEONECROSIS [None]
  - OSTEOPENIA [None]
  - PARAESTHESIA [None]
  - PERIODONTAL DISEASE [None]
  - RESORPTION BONE INCREASED [None]
  - RHEUMATOID ARTHRITIS [None]
  - TOOTH DISORDER [None]
  - VOMITING [None]
  - WEIGHT DECREASED [None]
